FAERS Safety Report 17454946 (Version 1)
Quarter: 2020Q1

REPORT INFORMATION
  Report Type: Spontaneous
  Country: US (occurrence: US)
  Receive Date: 20200225
  Receipt Date: 20200225
  Transmission Date: 20200409
  Serious: No
  Sender: FDA-Public Use
  Company Number: US-009507513-2002USA005736

PATIENT
  Sex: Female

DRUGS (1)
  1. NUVARING [Suspect]
     Active Substance: ETHINYL ESTRADIOL\ETONOGESTREL
     Indication: CONTRACEPTION
     Dosage: THE NUVARING
     Route: 067
     Dates: start: 20200209

REACTIONS (2)
  - Complication associated with device [Unknown]
  - Device breakage [Unknown]

NARRATIVE: CASE EVENT DATE: 20200212
